FAERS Safety Report 22957095 (Version 4)
Quarter: 2025Q1

REPORT INFORMATION
  Report Type: Report from Study
  Country: US (occurrence: US)
  Receive Date: 20230919
  Receipt Date: 20250219
  Transmission Date: 20250409
  Serious: Yes (Hospitalization, Other)
  Sender: TAKEDA
  Company Number: US-TAKEDA-2023TUS062468

PATIENT
  Age: 93 Year
  Sex: Female

DRUGS (16)
  1. IXAZOMIB [Suspect]
     Active Substance: IXAZOMIB
     Indication: Nephrogenic anaemia
  2. IXAZOMIB [Suspect]
     Active Substance: IXAZOMIB
     Indication: Plasma cell myeloma
  3. IXAZOMIB [Suspect]
     Active Substance: IXAZOMIB
  4. POMALYST [Suspect]
     Active Substance: POMALIDOMIDE
     Indication: Product used for unknown indication
  5. ACYCLOVIR [Concomitant]
     Active Substance: ACYCLOVIR
  6. DEXAMETHASONE [Concomitant]
     Active Substance: DEXAMETHASONE
  7. LATANOPROST [Concomitant]
     Active Substance: LATANOPROST
  8. LISINOPRIL [Concomitant]
     Active Substance: LISINOPRIL
  9. LISINOPRIL [Concomitant]
     Active Substance: LISINOPRIL
  10. Systane icaps areds 2 [Concomitant]
  11. VITAMIN C [Concomitant]
     Active Substance: ASCORBIC ACID
  12. VITAMIN D3 [Concomitant]
     Active Substance: CHOLECALCIFEROL
  13. ELIQUIS [Concomitant]
     Active Substance: APIXABAN
  14. ASPIRIN [Concomitant]
     Active Substance: ASPIRIN
  15. CALCIUM [Concomitant]
     Active Substance: CALCIUM
  16. DIFLUCAN [Concomitant]
     Active Substance: FLUCONAZOLE

REACTIONS (6)
  - Respiratory disorder [Recovering/Resolving]
  - Plasma cell myeloma [Unknown]
  - Rash [Recovering/Resolving]
  - Urinary tract infection [Recovered/Resolved]
  - COVID-19 [Unknown]
  - Off label use [Unknown]

NARRATIVE: CASE EVENT DATE: 20230612
